FAERS Safety Report 15604541 (Version 3)
Quarter: 2018Q4

REPORT INFORMATION
  Report Type: Report from Study
  Country: CR (occurrence: CR)
  Receive Date: 20181110
  Receipt Date: 20181127
  Transmission Date: 20190205
  Serious: No
  Sender: FDA-Public Use
  Company Number: PHHY2018CR149887

PATIENT
  Sex: Female
  Weight: 60 kg

DRUGS (2)
  1. POSITIVUM [Concomitant]
     Indication: DEPRESSION
     Dosage: 1 DF, QD
     Route: 065
  2. GILENYA [Suspect]
     Active Substance: FINGOLIMOD HYDROCHLORIDE
     Indication: MULTIPLE SCLEROSIS
     Dosage: 0.5 MG, QD
     Route: 048
     Dates: start: 201806

REACTIONS (4)
  - Urinary tract infection [Unknown]
  - Blood bilirubin increased [Unknown]
  - Chromaturia [Unknown]
  - Urinary incontinence [Unknown]
